FAERS Safety Report 19759932 (Version 1)
Quarter: 2021Q3

REPORT INFORMATION
  Report Type: Spontaneous
  Country: US (occurrence: US)
  Receive Date: 20210830
  Receipt Date: 20210830
  Transmission Date: 20211014
  Serious: No
  Sender: FDA-Public Use
  Company Number: US-009507513-2108USA005292

PATIENT
  Sex: Male

DRUGS (3)
  1. KEYTRUDA [Suspect]
     Active Substance: PEMBROLIZUMAB
     Indication: LUNG NEOPLASM MALIGNANT
     Dosage: UNK
     Dates: start: 20210121
  2. CODEINE [Suspect]
     Active Substance: CODEINE
     Dosage: UNK
     Dates: start: 202106
  3. CODEINE [Suspect]
     Active Substance: CODEINE
     Indication: COUGH
     Dosage: UNK
     Dates: start: 202010, end: 202104

REACTIONS (3)
  - Dyspnoea [Unknown]
  - Drug ineffective [Unknown]
  - Cough [Unknown]

NARRATIVE: CASE EVENT DATE: 2021
